FAERS Safety Report 5730913-X (Version None)
Quarter: 2008Q2

REPORT INFORMATION
  Report Type: 
  Country: None (occurrence: None)
  Receive Date: 20080507
  Receipt Date: 20080428
  Transmission Date: 20081010
  Serious: Yes (Hospitalization)
  Sender: FDA-Public Use
  Company Number: DE-AMGEN-UK271232

PATIENT
  Sex: Male
  Weight: 82 kg

DRUGS (7)
  1. VECTIBIX [Suspect]
     Indication: DRUG USE FOR UNKNOWN INDICATION
     Route: 065
     Dates: start: 20080304, end: 20080304
  2. DOXYCYCLINE [Concomitant]
     Route: 048
     Dates: end: 20080324
  3. BISOPROLOL FUMARATE [Concomitant]
     Route: 048
  4. TORSEMIDE [Concomitant]
     Route: 048
  5. MARCUMAR [Concomitant]
     Route: 048
  6. CAPTOPRIL [Concomitant]
     Route: 048
  7. GABAPENTIN [Concomitant]
     Route: 048

REACTIONS (1)
  - SKIN TOXICITY [None]
